FAERS Safety Report 4540405-1 (Version None)
Quarter: 2004Q4

REPORT INFORMATION
  Report Type: 
  Country: None (occurrence: None)
  Receive Date: 20041222
  Receipt Date: 20041213
  Transmission Date: 20050328
  Serious: Yes (Other)
  Sender: FDA-Public Use
  Company Number: GB-2004-036443

PATIENT
  Age: 40 Year
  Sex: Female

DRUGS (2)
  1. MIRENA [Suspect]
     Indication: CONTRACEPTION
     Dosage: UNK, INTRA-UTERINE
     Route: 015
     Dates: start: 20030101, end: 20041101
  2. FLUCONAZOLE [Concomitant]

REACTIONS (1)
  - BREAST CANCER METASTATIC [None]
